FAERS Safety Report 20807730 (Version 1)
Quarter: 2022Q2

REPORT INFORMATION
  Report Type: Spontaneous
  Country: US (occurrence: US)
  Receive Date: 20220510
  Receipt Date: 20220510
  Transmission Date: 20220721
  Serious: Yes (Hospitalization)
  Sender: FDA-Public Use
  Company Number: US-BRISTOL-MYERS SQUIBB COMPANY-2022-033545

PATIENT
  Age: 21 Year
  Sex: Female
  Weight: 108.8 kg

DRUGS (2)
  1. ELIQUIS [Suspect]
     Active Substance: APIXABAN
     Indication: Pulmonary embolism
     Dosage: DOSE : UNAVAILABLE (NOT PROVIDED);     FREQ : ONCE IN THE MORNING AND ONCE AT NIGHT
     Route: 048
     Dates: start: 20220428
  2. ZOLOFT [Concomitant]
     Active Substance: SERTRALINE HYDROCHLORIDE
     Indication: Product used for unknown indication

REACTIONS (3)
  - Sinusitis [Unknown]
  - Heart rate irregular [Unknown]
  - Illness [Unknown]
